FAERS Safety Report 22385001 (Version 1)
Quarter: 2023Q2

REPORT INFORMATION
  Report Type: Spontaneous
  Country: US (occurrence: None)
  Receive Date: 20230528
  Receipt Date: 20230528
  Transmission Date: 20230721
  Serious: Yes (Disabling, Other)
  Sender: FDA-Public Use
  Company Number: None

PATIENT
  Age: 38 Year
  Sex: Female
  Weight: 49.5 kg

DRUGS (1)
  1. SUBOXONE [Suspect]
     Active Substance: BUPRENORPHINE HYDROCHLORIDE\NALOXONE HYDROCHLORIDE
     Indication: Drug dependence
     Dates: start: 20160707

REACTIONS (6)
  - Dental caries [None]
  - Tooth fracture [None]
  - Weight decreased [None]
  - Anxiety [None]
  - Depression [None]
  - Psychiatric symptom [None]

NARRATIVE: CASE EVENT DATE: 20220901
